FAERS Safety Report 4869537-5 (Version None)
Quarter: 2005Q4

REPORT INFORMATION
  Report Type: 
  Country: None (occurrence: None)
  Receive Date: 20051227
  Receipt Date: 20051216
  Transmission Date: 20060501
  Serious: Yes (Other)
  Sender: FDA-Public Use
  Company Number: FR-JNJFOC-20051203869

PATIENT
  Age: 73 Year
  Sex: Female

DRUGS (2)
  1. REMINYL                  (GALANTAMINE HBR) TABLETS [Suspect]
     Indication: DEMENTIA ALZHEIMER'S TYPE
     Dosage: 8 MG, 3 IN 1 DAY, ORAL
     Route: 048
     Dates: end: 20051215
  2. PROZAC [Concomitant]

REACTIONS (1)
  - EXTRASYSTOLES [None]
